FAERS Safety Report 16414428 (Version 1)
Quarter: 2019Q3

REPORT INFORMATION
  Report Type: Spontaneous
  Country: US (occurrence: US)
  Receive Date: 20190610
  Receipt Date: 20190610
  Transmission Date: 20191004
  Serious: No
  Sender: FDA-Public Use
  Company Number: None

PATIENT
  Age: 30 Year
  Sex: Female
  Weight: 66.15 kg

DRUGS (1)
  1. G.E. METHYLPHENIDATE ER [Suspect]
     Active Substance: METHYLPHENIDATE
     Indication: ATTENTION DEFICIT/HYPERACTIVITY DISORDER
     Dosage: ?          QUANTITY:1 TABLET(S);?
     Route: 048
     Dates: start: 20190609, end: 20190610

REACTIONS (4)
  - Drug ineffective [None]
  - Disturbance in attention [None]
  - Condition aggravated [None]
  - Therapeutic response changed [None]

NARRATIVE: CASE EVENT DATE: 20190609
